FAERS Safety Report 18499542 (Version 1)
Quarter: 2020Q4

REPORT INFORMATION
  Report Type: Spontaneous
  Country: US (occurrence: US)
  Receive Date: 20201113
  Receipt Date: 20201113
  Transmission Date: 20210114
  Serious: No
  Sender: FDA-Public Use
  Company Number: US-ACCORD-176957

PATIENT
  Age: 35 Year
  Sex: Female

DRUGS (5)
  1. FLUTICASONE. [Concomitant]
     Active Substance: FLUTICASONE
  2. MONTELUKAST [Suspect]
     Active Substance: MONTELUKAST SODIUM
     Indication: ASTHMA
     Dosage: ONCE A DAY, EVENING
     Dates: start: 201910, end: 20200317
  3. ADVIAR HFA [Concomitant]
     Dosage: STRENGTH 115/120
  4. AZELASTINE/AZELASTINE HYDROCHLORIDE [Concomitant]
  5. ZYRTEC [Concomitant]
     Active Substance: CETIRIZINE HYDROCHLORIDE

REACTIONS (6)
  - Product physical issue [Unknown]
  - Asthma [Recovering/Resolving]
  - Product dose omission issue [Unknown]
  - Paraesthesia oral [Recovering/Resolving]
  - Lip swelling [Recovering/Resolving]
  - Lip erythema [Recovering/Resolving]

NARRATIVE: CASE EVENT DATE: 20200318
